FAERS Safety Report 5319964-7 (Version None)
Quarter: 2007Q1

REPORT INFORMATION
  Report Type: 
  Country: None (occurrence: None)
  Receive Date: 20070209
  Receipt Date: 20061106
  Transmission Date: 20070707
  Serious: Yes (Other)
  Sender: FDA-Public Use
  Company Number: 200617346US

PATIENT
  Age: 61 Year
  Sex: Female
  Weight: 77.3 kg

DRUGS (4)
  1. INSULIN GLULISINE (APIDRA) [Suspect]
     Dosage: 80 U HS
     Dates: end: 20060801
  2. LANTUS [Suspect]
     Indication: INSULIN-REQUIRING TYPE II DIABETES MELLITUS
     Dosage: 80 U HS
     Dates: start: 20040101
  3. IBUPROFEN [Concomitant]
  4. NAPROXEN [Concomitant]

REACTIONS (9)
  - BACK PAIN [None]
  - BLOOD GLUCOSE DECREASED [None]
  - BLOOD GLUCOSE INCREASED [None]
  - DYSPNOEA [None]
  - FEELING ABNORMAL [None]
  - FEELING HOT [None]
  - HEART RATE INCREASED [None]
  - HYPERHIDROSIS [None]
  - PALPITATIONS [None]
